FAERS Safety Report 9226359 (Version 2)
Quarter: 2013Q2

REPORT INFORMATION
  Report Type: Spontaneous
  Country: US (occurrence: US)
  Receive Date: 20130411
  Receipt Date: 20130522
  Transmission Date: 20140414
  Serious: Yes (Other)
  Sender: FDA-Public Use
  Company Number: US-009507513-1304USA002809

PATIENT
  Sex: Female

DRUGS (4)
  1. PRINIVIL [Suspect]
     Route: 048
  2. PRISTIQ [Concomitant]
     Dosage: 1 DF, QD
     Route: 048
  3. NORVASC [Concomitant]
     Dosage: 1 DF, QD
     Route: 048
  4. NEURONTIN [Concomitant]
     Dosage: 1 DF, TID
     Route: 048

REACTIONS (13)
  - Stent placement [Unknown]
  - Myocardial infarction [Unknown]
  - Renal failure [Unknown]
  - Joint arthroplasty [Unknown]
  - Drug hypersensitivity [Unknown]
  - Neuropathy peripheral [Unknown]
  - Diabetes mellitus [Unknown]
  - Amnesia [Unknown]
  - Hypertension [Unknown]
  - Aneurysm [Unknown]
  - Fibromyalgia [Unknown]
  - Drug hypersensitivity [Unknown]
  - Drug hypersensitivity [Unknown]
